FAERS Safety Report 11505192 (Version 1)
Quarter: 2015Q3

REPORT INFORMATION
  Report Type: Spontaneous
  Country: US (occurrence: US)
  Receive Date: 20150915
  Receipt Date: 20150915
  Transmission Date: 20151125
  Serious: No
  Sender: FDA-Public Use
  Company Number: US-ROCHE-771761

PATIENT
  Sex: Male

DRUGS (1)
  1. PEGASYS [Suspect]
     Active Substance: PEGINTERFERON ALFA-2A
     Indication: HEPATITIS C
     Route: 048
     Dates: start: 201005, end: 201008

REACTIONS (4)
  - Retinal ischaemia [Recovered/Resolved]
  - Medication error [Unknown]
  - Haemoglobin decreased [Unknown]
  - Visual impairment [Recovering/Resolving]
